FAERS Safety Report 6064819-6 (Version None)
Quarter: 2009Q1

REPORT INFORMATION
  Report Type: 
  Country: None (occurrence: None)
  Receive Date: 20090204
  Receipt Date: 20090129
  Transmission Date: 20090719
  Serious: Yes (Hospitalization, Other)
  Sender: FDA-Public Use
  Company Number: US-ABBOTT-09P-163-0500828-00

PATIENT
  Sex: Male
  Weight: 63.56 kg

DRUGS (5)
  1. HUMIRA [Suspect]
     Indication: PSORIATIC ARTHROPATHY
     Route: 058
     Dates: start: 20080101, end: 20080601
  2. HUMIRA [Suspect]
     Indication: PSORIASIS
     Dates: start: 20080701, end: 20081209
  3. HUMIRA [Suspect]
     Dates: start: 20090120
  4. LISINOPRIL [Concomitant]
     Indication: DRUG USE FOR UNKNOWN INDICATION
  5. PROZAC [Concomitant]
     Indication: DRUG USE FOR UNKNOWN INDICATION

REACTIONS (6)
  - ARTHRALGIA [None]
  - OEDEMA [None]
  - PRURITUS [None]
  - PSORIASIS [None]
  - RENAL FAILURE [None]
  - SKIN ULCER [None]
